FAERS Safety Report 10157682 (Version 1)
Quarter: 2014Q2

REPORT INFORMATION
  Report Type: Report from Study
  Country: US (occurrence: US)
  Receive Date: 20140507
  Receipt Date: 20140507
  Transmission Date: 20141212
  Serious: Yes (Hospitalization)
  Sender: FDA-Public Use
  Company Number: US-ASTRAZENECA-2014SE29703

PATIENT
  Age: 58 Year
  Sex: Female
  Weight: 93.4 kg

DRUGS (8)
  1. CRESTOR [Suspect]
     Indication: BLOOD CHOLESTEROL ABNORMAL
     Route: 048
     Dates: start: 2006
  2. SYMBICORT [Suspect]
     Indication: CHRONIC OBSTRUCTIVE PULMONARY DISEASE
     Dosage: 80/4.5, 2 PUFFS BID
     Route: 055
     Dates: start: 2013
  3. SYMBICORT [Suspect]
     Indication: TOBACCO USER
     Dosage: 80/4.5, 2 PUFFS BID
     Route: 055
     Dates: start: 2013
  4. SYMBICORT [Suspect]
     Indication: DYSPNOEA
     Dosage: 80/4.5, 2 PUFFS BID
     Route: 055
     Dates: start: 2013
  5. PLAVIX [Concomitant]
     Indication: CARDIOVASCULAR EVENT PROPHYLAXIS
     Dates: start: 2006
  6. COREG [Concomitant]
     Indication: CARDIAC DISORDER
     Dosage: 6.25, BID
     Dates: start: 200604
  7. LIPITOR [Concomitant]
  8. METCOR [Concomitant]

REACTIONS (2)
  - Pneumonia [Unknown]
  - Off label use [Unknown]
